FAERS Safety Report 19470472 (Version 1)
Quarter: 2021Q2

REPORT INFORMATION
  Report Type: Spontaneous
  Country: US (occurrence: US)
  Receive Date: 20210628
  Receipt Date: 20210628
  Transmission Date: 20210717
  Serious: Yes (Other)
  Sender: FDA-Public Use
  Company Number: US-ENDO PHARMACEUTICALS INC-2021-003749

PATIENT
  Age: 58 Year
  Sex: Male

DRUGS (2)
  1. RANITIDINE. [Suspect]
     Active Substance: RANITIDINE
     Indication: ULCER
     Dosage: 150 MG, UNK
     Route: 065
     Dates: start: 200107, end: 202003
  2. RANITIDINE HYDROCHLORIDE. [Suspect]
     Active Substance: RANITIDINE HYDROCHLORIDE
     Indication: ULCER
     Dosage: 150 MG, BID
     Route: 065
     Dates: start: 200107, end: 202003

REACTIONS (2)
  - Bladder cancer [Unknown]
  - Colorectal cancer stage III [Recovering/Resolving]

NARRATIVE: CASE EVENT DATE: 20070801
